FAERS Safety Report 24442783 (Version 2)
Quarter: 2024Q4

REPORT INFORMATION
  Report Type: Report from Study
  Country: CH (occurrence: CH)
  Receive Date: 20241016
  Receipt Date: 20241024
  Transmission Date: 20250114
  Serious: Yes (Hospitalization, Other)
  Sender: GILEAD
  Company Number: None

PATIENT
  Age: 58 Year
  Sex: Female
  Weight: 72.8 kg

DRUGS (12)
  1. SACITUZUMAB GOVITECAN-HZIY [Suspect]
     Active Substance: SACITUZUMAB GOVITECAN-HZIY
     Indication: Breast cancer metastatic
     Dosage: 590 MG,7 MG/ KG BW
     Route: 040
     Dates: start: 20230711, end: 20230711
  2. SACITUZUMAB GOVITECAN-HZIY [Suspect]
     Active Substance: SACITUZUMAB GOVITECAN-HZIY
     Dosage: 1 DOSAGE FORM, Q3WK
     Route: 040
     Dates: start: 20230814
  3. AKYNZEO [FOSNETUPITANT CHLORIDE HYDROCHLORIDE;PALONOSETRON HYDROCHLORI [Concomitant]
     Indication: Chemotherapy side effect prophylaxis
     Dosage: 300 MG NETUPITANT/ 0.5 MG PALONOSETRON PER DOSAGE FORM
     Dates: start: 20230814
  4. DAFALGAN [Concomitant]
     Active Substance: ACETAMINOPHEN
     Indication: Chemotherapy side effect prophylaxis
     Dates: start: 20230814
  5. DEXAMETHASONE [Concomitant]
     Active Substance: DEXAMETHASONE
     Indication: Chemotherapy side effect prophylaxis
     Dates: start: 20230814
  6. CLEMASTINE FUMARATE [Concomitant]
     Active Substance: CLEMASTINE FUMARATE
     Indication: Chemotherapy side effect prophylaxis
     Dates: start: 20230814
  7. LEVOTHYROXINE [Concomitant]
     Active Substance: LEVOTHYROXINE
     Route: 048
  8. PANTOPRAZOLE [Concomitant]
     Active Substance: PANTOPRAZOLE
     Dosage: 40 MG
     Route: 048
     Dates: start: 20240912
  9. LOPERAMIDE HYDROCHLORIDE [Concomitant]
     Active Substance: LOPERAMIDE HYDROCHLORIDE
     Dosage: MAX. 16 MG/DAY
     Route: 048
     Dates: start: 20230912
  10. METOCLOPRAMIDE HYDROCHLORIDE [Concomitant]
     Active Substance: METOCLOPRAMIDE HYDROCHLORIDE
     Dosage: MAX. 3X 10 MG/DAY
     Route: 048
     Dates: start: 20230912
  11. ACETAMINOPHEN [Concomitant]
     Active Substance: ACETAMINOPHEN
     Dosage: 500 MG EVERY 4 H OR 1000 MG EVERY 6 H
     Route: 048
     Dates: start: 20230912
  12. CARBAMID [Concomitant]
     Route: 003

REACTIONS (3)
  - Colitis [Recovering/Resolving]
  - Neutropenia [Recovering/Resolving]
  - Enteritis [Recovering/Resolving]

NARRATIVE: CASE EVENT DATE: 20230901
